FAERS Safety Report 8058180-5 (Version None)
Quarter: 2012Q1

REPORT INFORMATION
  Report Type: 
  Country: None (occurrence: None)
  Receive Date: 20120112
  Receipt Date: 20120104
  Transmission Date: 20120608
  Serious: Yes (Other)
  Sender: FDA-Public Use
  Company Number: 2012SP000973

PATIENT
  Age: 79 Year
  Sex: Female

DRUGS (4)
  1. TRAVATAN [Concomitant]
  2. PILOCARPINE [Concomitant]
  3. DULERA ORAL INHALATION [Suspect]
     Indication: PRODUCT USED FOR UNKNOWN INDICATION
     Dates: start: 20111207, end: 20111207
  4. METOPROLOL TARTRATE [Concomitant]

REACTIONS (8)
  - FEELING ABNORMAL [None]
  - BONE PAIN [None]
  - TREMOR [None]
  - ASTHENIA [None]
  - FATIGUE [None]
  - AMNESIA [None]
  - COMA [None]
  - PAIN [None]
